FAERS Safety Report 7356534-3 (Version None)
Quarter: 2011Q1

REPORT INFORMATION
  Report Type: 
  Country: None (occurrence: None)
  Receive Date: 20110316
  Receipt Date: 20110302
  Transmission Date: 20110831
  Serious: Yes (Hospitalization, Other)
  Sender: FDA-Public Use
  Company Number: PHHY2011DE13147

PATIENT
  Sex: Male
  Weight: 85.5 kg

DRUGS (6)
  1. AFINITOR [Suspect]
     Dosage: UNK
     Dates: start: 20110214
  2. AFINITOR [Suspect]
     Dosage: 5 MG PER DAY
     Route: 048
     Dates: start: 20110228
  3. CONCOR [Concomitant]
     Indication: HYPERTENSION
     Dosage: 5 MG, PER DAY
     Route: 048
     Dates: start: 20110214
  4. FORTECORTIN [Concomitant]
     Indication: METASTASES TO CENTRAL NERVOUS SYSTEM
     Dosage: 8 MG,PER DAY
     Route: 048
     Dates: start: 20110104
  5. PANTOZOL [Concomitant]
     Indication: GASTRITIS PROPHYLAXIS
     Dosage: 40 MG, PER DAY
     Route: 048
     Dates: start: 20100922
  6. AFINITOR [Suspect]
     Indication: RENAL CELL CARCINOMA
     Dosage: 10 MG, PER DAY
     Route: 048
     Dates: start: 20110206, end: 20110213

REACTIONS (3)
  - FATIGUE [None]
  - SUPRAVENTRICULAR TACHYCARDIA [None]
  - DRUG INTOLERANCE [None]
